FAERS Safety Report 7883259-8 (Version None)
Quarter: 2011Q4

REPORT INFORMATION
  Report Type: 
  Country: None (occurrence: None)
  Receive Date: 20111031
  Receipt Date: 20111020
  Transmission Date: 20120403
  Serious: Yes (Other)
  Sender: FDA-Public Use
  Company Number: ACO_27242_2011

PATIENT
  Age: 66 Year
  Sex: Male
  Weight: 86.2 kg

DRUGS (9)
  1. DIGETEK (DIGETEK) [Concomitant]
  2. AMPYRA [Suspect]
     Indication: MUSCULAR WEAKNESS
     Dosage: 10MG, BID, ORAL
     Route: 048
     Dates: start: 20101027, end: 20110624
  3. REBIF [Suspect]
     Indication: MULTIPLE SCLEROSIS
     Dates: start: 20080101, end: 20110601
  4. WELCHOL [Concomitant]
  5. DOXAZOSIN MESYLATE [Concomitant]
  6. PROPAFENONE HCL [Concomitant]
  7. OXYBUTYNIN [Concomitant]
  8. COREG [Concomitant]
  9. LOVAZA [Suspect]
     Indication: PRODUCT USED FOR UNKNOWN INDICATION

REACTIONS (4)
  - ABNORMAL DREAMS [None]
  - DRUG INEFFECTIVE [None]
  - INSOMNIA [None]
  - HEPATIC ENZYME INCREASED [None]
